FAERS Safety Report 19489217 (Version 1)
Quarter: 2021Q3

REPORT INFORMATION
  Report Type: Spontaneous
  Country: DE (occurrence: DE)
  Receive Date: 20210703
  Receipt Date: 20210703
  Transmission Date: 20211014
  Serious: Yes (Death, Hospitalization)
  Sender: FDA-Public Use
  Company Number: DE-TEVA-2021-DE-1928365

PATIENT
  Age: 73 Year
  Sex: Male
  Weight: 58.6 kg

DRUGS (14)
  1. TORASEMID [Concomitant]
     Active Substance: TORSEMIDE
     Dosage: 20 MILLIGRAM DAILY;  1?0?0?0,
     Route: 048
  2. ACETYLSALICYLSAURE [Concomitant]
     Active Substance: ASPIRIN
     Dosage: 100 MILLIGRAM DAILY;  1?0?0?0,
     Route: 048
  3. MCP AL 10 [Concomitant]
     Dosage: 30 MILLIGRAM DAILY;  1?1?1?0,
     Route: 048
  4. AMLODIPIN [Concomitant]
     Active Substance: AMLODIPINE BESYLATE
     Dosage: 5 MILLIGRAM DAILY;  1?0?0?0,
     Route: 048
  5. OXALIPLATIN. [Suspect]
     Active Substance: OXALIPLATIN
     Route: 042
  6. RAMIPRIL. [Concomitant]
     Active Substance: RAMIPRIL
     Dosage: 5 MILLIGRAM DAILY;  1?0?0?0,
     Route: 048
  7. PANTOPRAZOL [Concomitant]
     Active Substance: PANTOPRAZOLE SODIUM
     Dosage: 40 MILLIGRAM DAILY;  1?0?0?0,
     Route: 048
  8. TAMSULOSIN [Concomitant]
     Active Substance: TAMSULOSIN
     Dosage: .4 MILLIGRAM DAILY;   0?0?1?0
     Route: 048
  9. FENTANYL. [Concomitant]
     Active Substance: FENTANYL
     Dosage: 25 MICROGRAM DAILY; CHANGE EVERY THREE DAYS,
  10. FLUOROURACIL. [Suspect]
     Active Substance: FLUOROURACIL
     Route: 042
  11. SITAGLIPTIN [Concomitant]
     Active Substance: SITAGLIPTIN
     Dosage: 100 MILLIGRAM DAILY;  1?0?0?0,
     Route: 048
  12. IRINOTECAN [Suspect]
     Active Substance: IRINOTECAN
     Route: 042
  13. METAMIZOL [Concomitant]
     Active Substance: METAMIZOLE SODIUM
     Dosage: 2 DOSAGE FORMS DAILY; 500 MG, 2?2?2?2,
     Route: 048
  14. MOVICOL BEUTEL [Concomitant]
     Active Substance: POLYETHYLENE GLYCOL 3350\POTASSIUM CHLORIDE\SODIUM BICARBONATE\SODIUM CHLORIDE
     Dosage: 1 DOSAGE FORMS DAILY; 1?0?0?0,
     Route: 048

REACTIONS (2)
  - General physical health deterioration [Unknown]
  - Dysuria [Unknown]
